FAERS Safety Report 8288221-1 (Version None)
Quarter: 2012Q2

REPORT INFORMATION
  Report Type: 
  Country: None (occurrence: None)
  Receive Date: 20120416
  Receipt Date: 20120411
  Transmission Date: 20120825
  Serious: Yes (Hospitalization)
  Sender: FDA-Public Use
  Company Number: DE-ROCHE-1058930

PATIENT
  Sex: Female
  Weight: 108 kg

DRUGS (10)
  1. BISOPROLOL [Concomitant]
  2. ENOXAPARIN SODIUM [Concomitant]
     Dosage: DAILY DOSE REPORTED AS: 1500 X 3
     Dates: start: 20110426
  3. AVASTIN [Suspect]
     Indication: BREAST CANCER
     Dosage: DOSE AND FREQUENCY AS PER PROTOCOL. LAST DOSE PRIOR TO SAE: 02/APR/2012
     Route: 042
     Dates: start: 20100307
  4. LISINOPRIL [Concomitant]
  5. HELIXOR [Concomitant]
     Dosage: DAILY DOSE REPORTED AS 3X100 (UNIT WAS NOT LEGIBLE)
     Dates: start: 20100320
  6. METOCLOPRAMIDE DROPS [Concomitant]
     Dates: start: 20120312
  7. PANTOPRAZOLE [Concomitant]
     Dosage: DAILY DOSE REPORTED AS: 1-0-1
     Dates: start: 20100920
  8. XELODA [Suspect]
     Indication: BREAST CANCER
     Dosage: DOSE: AS PER PROTOCOL. LAST DOSE PRIOR TO SAE: 06/APR/2012
     Route: 048
     Dates: start: 20100307
  9. LEVOTHYROXINE SODIUM [Concomitant]
  10. TORSEMIDE [Concomitant]
     Dates: start: 20100920

REACTIONS (1)
  - APPENDICITIS PERFORATED [None]
